FAERS Safety Report 23373238 (Version 3)
Quarter: 2024Q1

REPORT INFORMATION
  Report Type: Report from Study
  Country: CN (occurrence: CN)
  Receive Date: 20240105
  Receipt Date: 20240304
  Transmission Date: 20240410
  Serious: Yes (Other)
  Sender: FDA-Public Use
  Company Number: CN-FOSUNKITE-FOSUNKITE-20231574

PATIENT
  Sex: Female

DRUGS (9)
  1. AXICABTAGENE CILOLEUCEL [Suspect]
     Active Substance: AXICABTAGENE CILOLEUCEL
     Indication: Non-Hodgkin^s lymphoma
     Dosage: 1.3?10^8 CELLS (NUMBER OF CAR-T CELLS)
     Route: 042
     Dates: start: 20231103, end: 20231103
  2. CYCLOPHOSPHAMIDE [Suspect]
     Active Substance: CYCLOPHOSPHAMIDE
     Indication: Lymphodepletion
     Dosage: 0.8 G
     Route: 041
     Dates: start: 20231029, end: 20231031
  3. CYCLOPHOSPHAMIDE [Suspect]
     Active Substance: CYCLOPHOSPHAMIDE
     Indication: Non-Hodgkin^s lymphoma
     Dosage: 1100 MG, CYCLE 1
     Route: 041
     Dates: start: 20230909
  4. FLUDARABINE PHOSPHATE [Concomitant]
     Active Substance: FLUDARABINE PHOSPHATE
     Indication: Lymphodepletion
     Dosage: 50 MG
     Route: 041
     Dates: start: 20231029, end: 20231031
  5. ADEBRELIMAB [Concomitant]
     Active Substance: ADEBRELIMAB
     Indication: Non-Hodgkin^s lymphoma
     Dosage: 300 MG
     Route: 041
     Dates: start: 20231104, end: 20231104
  6. ADEBRELIMAB [Concomitant]
     Active Substance: ADEBRELIMAB
     Dosage: 600 MG
     Route: 041
     Dates: start: 20231205
  7. VINCRISTINE [Concomitant]
     Active Substance: VINCRISTINE
     Indication: Non-Hodgkin^s lymphoma
     Dosage: 1 MG, CYCLE 1
     Route: 041
     Dates: start: 20230909
  8. DOXORUBICIN HYDROCHLORIDE [Concomitant]
     Active Substance: DOXORUBICIN HYDROCHLORIDE
     Indication: Non-Hodgkin^s lymphoma
     Dosage: 50 MG, CYCLE 1
     Route: 041
     Dates: start: 20231109
  9. POLATUZUMAB VEDOTIN [Concomitant]
     Active Substance: POLATUZUMAB VEDOTIN
     Indication: Non-Hodgkin^s lymphoma
     Dosage: UNK
     Dates: start: 20231020

REACTIONS (3)
  - Hepatic failure [Not Recovered/Not Resolved]
  - Gastrointestinal haemorrhage [Recovered/Resolved]
  - Cytokine release syndrome [Recovered/Resolved]

NARRATIVE: CASE EVENT DATE: 20231105
